FAERS Safety Report 16951505 (Version 2)
Quarter: 2019Q4

REPORT INFORMATION
  Report Type: Report from Study
  Country: None (occurrence: CA)
  Receive Date: 20191023
  Receipt Date: 20191128
  Transmission Date: 20200122
  Serious: Yes (Hospitalization)
  Sender: FDA-Public Use
  Company Number: CA-ABBVIE-19K-028-2969866-00

PATIENT
  Sex: Female

DRUGS (1)
  1. HUMIRA [Suspect]
     Active Substance: ADALIMUMAB
     Indication: CROHN^S DISEASE
     Route: 058
     Dates: start: 20160520

REACTIONS (12)
  - Sinusitis [Unknown]
  - Myalgia [Unknown]
  - Nasopharyngitis [Unknown]
  - Loss of personal independence in daily activities [Not Recovered/Not Resolved]
  - Arthropod sting [Unknown]
  - Anaphylactic shock [Unknown]
  - Injection site pain [Unknown]
  - Impaired work ability [Not Recovered/Not Resolved]
  - Episcleritis [Unknown]
  - Eye infection [Unknown]
  - Upper respiratory tract infection [Unknown]
  - Exposure to communicable disease [Unknown]

NARRATIVE: CASE EVENT DATE: 2019
